FAERS Safety Report 8857798 (Version 1)
Quarter: 2012Q4

REPORT INFORMATION
  Report Type: 
  Country: US (occurrence: US)
  Receive Date: 20121024
  Receipt Date: 20121024
  Transmission Date: 20130627
  Serious: No
  Sender: FDA-Public Use
  Company Number: US-ASTRAZENECA-2012SE77008

PATIENT
  Age: 67 Year
  Sex: Female

DRUGS (24)
  1. NEXIUM [Suspect]
     Route: 048
  2. LISINOPRIL [Suspect]
     Route: 048
  3. CRESTOR [Suspect]
     Route: 048
  4. DICYCLOMINE HCL [Concomitant]
     Dosage: 1 QID/PRN
     Route: 048
  5. PROMETHAZINE HCL [Concomitant]
     Dosage: 1 QID/PRN
     Route: 048
  6. TYLOX [Concomitant]
     Dosage: ONE 5-500 MG QID/PRN
     Route: 048
  7. HYDROXYZINE HCL [Concomitant]
     Dosage: ONE QID/PRN
     Route: 048
  8. ATIVAN [Concomitant]
     Dosage: TID/PRN
     Route: 048
  9. POTASSIUM CHLORIDE [Concomitant]
     Dosage: 10 MEQ 1 CAPSULE DAILY
     Route: 048
  10. SYNTHROID [Concomitant]
     Route: 048
  11. PROAIR HFA [Concomitant]
     Dosage: 108 90 BASE MCG/ACT AEROSOL SOLN 1-2 FOUR TIMES DAILY AS NEEDED
     Route: 055
  12. ADVAIR DISCUS [Concomitant]
     Dosage: 250-50 MCG/DOSE AERO POW BR ACT 1 INHALATION TWO TIMES DAILY
     Route: 055
  13. CICLOPIROX [Concomitant]
     Dosage: 1 EXTERNAL
  14. ASPIRIN [Concomitant]
     Route: 048
  15. LORATADINE [Concomitant]
     Route: 048
  16. ONETOUCH TEST [Concomitant]
     Dosage: 1 IN VITRO QD
  17. ONETOUCH DELICA LANCETS [Concomitant]
     Dosage: 1 QD
  18. ONETOUCH ULTRA MINI [Concomitant]
     Dosage: W/DEVICE KIT 1 EVERY OTHER DAY
  19. FLEXERIL [Concomitant]
     Dosage: 1 ORAL, THREE TIMES DAILY, AS NEEDED
     Route: 048
  20. DUONEB [Concomitant]
     Dosage: 0.5-2.5 (3)MG/3 MLFOUR TIMES DAILY AS NEEDED
     Route: 055
  21. AMITRIPTYLINE HCL [Concomitant]
     Indication: PAIN IN EXTREMITY
     Dosage: 3 QHS
  22. LASIX [Concomitant]
     Route: 048
  23. PREMARIN [Concomitant]
     Dosage: 0.625 MG/GM CREAM 1/2 VAGINAL HS
  24. TRIAMCINOLONE ACETONIDE [Concomitant]
     Dosage: CREAM 1 EXTERNAL BID/PRN

REACTIONS (8)
  - Type 2 diabetes mellitus [Unknown]
  - Anxiety [Unknown]
  - Asthma [Unknown]
  - Barrett^s oesophagus [Unknown]
  - Back pain [Unknown]
  - Pain in extremity [Unknown]
  - Arthralgia [Unknown]
  - Hepatic function abnormal [Unknown]
